FAERS Safety Report 10148593 (Version 2)
Quarter: 2014Q2

REPORT INFORMATION
  Report Type: Spontaneous
  Country: US (occurrence: US)
  Receive Date: 20140501
  Receipt Date: 20140602
  Transmission Date: 20141212
  Serious: No
  Sender: FDA-Public Use
  Company Number: US-AMGEN-USASP2014030938

PATIENT
  Age: 38 Year
  Sex: Female
  Weight: 79.82 kg

DRUGS (5)
  1. ENBREL [Suspect]
     Indication: RHEUMATOID ARTHRITIS
     Dosage: 50 MG, QWK
     Route: 058
     Dates: start: 201403, end: 20140505
  2. MEDROL                             /00049601/ [Suspect]
     Indication: RHEUMATOID ARTHRITIS
     Dosage: 4 MG, QD
     Route: 048
     Dates: start: 20140303
  3. MOBIC [Suspect]
     Indication: RHEUMATOID ARTHRITIS
     Dosage: 7.5 MG, QD TO BID
     Route: 048
     Dates: start: 20140303
  4. PRILOSEC                           /00661201/ [Concomitant]
     Dosage: 2 MG, QD
     Route: 048
     Dates: start: 20140303
  5. ALPRAZOLAM [Concomitant]
     Dosage: 0.5 MG, 2QD
     Route: 048

REACTIONS (3)
  - Peripheral swelling [Unknown]
  - Muscle tightness [Not Recovered/Not Resolved]
  - Dyspnoea [Unknown]
